FAERS Safety Report 20485642 (Version 1)
Quarter: 2022Q1

REPORT INFORMATION
  Report Type: Spontaneous
  Country: CN (occurrence: CN)
  Receive Date: 20220217
  Receipt Date: 20220217
  Transmission Date: 20220423
  Serious: Yes (Other)
  Sender: FDA-Public Use
  Company Number: CN-BAYER-2022A024464

PATIENT
  Age: 82 Year
  Sex: Female
  Weight: 70 kg

DRUGS (1)
  1. AVELOX [Suspect]
     Active Substance: MOXIFLOXACIN HYDROCHLORIDE
     Indication: Bronchitis
     Dosage: 0.4 G, QD
     Route: 041
     Dates: start: 20220208, end: 20220211

REACTIONS (4)
  - Delirium [Recovered/Resolved]
  - Dysphoria [Recovered/Resolved]
  - Initial insomnia [None]
  - Anxiety [Recovered/Resolved]

NARRATIVE: CASE EVENT DATE: 20220211
